FAERS Safety Report 23088765 (Version 1)
Quarter: 2023Q4

REPORT INFORMATION
  Report Type: Spontaneous
  Country: US (occurrence: None)
  Receive Date: 20231018
  Receipt Date: 20231018
  Transmission Date: 20240110
  Serious: Yes (Hospitalization)
  Sender: FDA-Public Use
  Company Number: None

PATIENT
  Sex: Male
  Weight: 69.9 kg

DRUGS (8)
  1. CYCLOPHOSPHAMIDE [Suspect]
     Active Substance: CYCLOPHOSPHAMIDE
     Dates: end: 20230926
  2. CYTARABINE [Suspect]
     Active Substance: CYTARABINE
     Dates: end: 20231006
  3. DAUNORUBICIN [Suspect]
     Active Substance: DAUNORUBICIN
     Dates: end: 20230914
  4. MERCAPTOPURINE [Suspect]
     Active Substance: MERCAPTOPURINE
     Dates: end: 20231009
  5. METHOTREXATE [Suspect]
     Active Substance: METHOTREXATE
  6. PREDNISONE [Suspect]
     Active Substance: PREDNISONE
     Dates: end: 20230920
  7. GLEEVEC [Suspect]
     Active Substance: IMATINIB MESYLATE
     Dates: end: 20231012
  8. VINCRISTINE SULFATE [Suspect]
     Active Substance: VINCRISTINE SULFATE
     Dates: end: 20230914

REACTIONS (9)
  - Colitis [None]
  - Klebsiella test positive [None]
  - Blood culture positive [None]
  - Tachycardia [None]
  - Platelet count decreased [None]
  - Blood lactic acid decreased [None]
  - Blood creatinine increased [None]
  - Shock [None]
  - Febrile neutropenia [None]

NARRATIVE: CASE EVENT DATE: 20231013
